FAERS Safety Report 10409931 (Version 2)
Quarter: 2014Q3

REPORT INFORMATION
  Report Type: Spontaneous
  Country: AU (occurrence: None)
  Receive Date: 20140703
  Receipt Date: 20140709
  Transmission Date: 20150326
  Serious: Yes (Other)
  Sender: FDA-Public Use
  Company Number: AUR-APL-2014-06152

PATIENT
  Age: 49 Year
  Sex: Female

DRUGS (2)
  1. PREMIA (ESTOGENS CONJUGATED, MEDROXYPROGESTERONE ACETATE) [Concomitant]
  2. QUETIAPINE 200 MG (QUETIAPINE) [Suspect]
     Active Substance: QUETIAPINE
     Indication: DEPRESSION
     Dates: start: 20130115, end: 20130417

REACTIONS (3)
  - Sinusitis fungal [None]
  - Lymphocytosis [None]
  - Agranulocytosis [None]
